FAERS Safety Report 10692400 (Version 2)
Quarter: 2015Q1

REPORT INFORMATION
  Report Type: Spontaneous
  Country: US (occurrence: US)
  Receive Date: 20150106
  Receipt Date: 20150106
  Transmission Date: 20150720
  Serious: Yes (Other)
  Sender: FDA-Public Use
  Company Number: US-JNJCP-30000258059

PATIENT
  Sex: Female

DRUGS (1)
  1. JOHNSON^S BABY PRODUCTS [Suspect]
     Active Substance: UNSPECIFIED INGREDIENT
     Indication: PRODUCT USED FOR UNKNOWN INDICATION
     Route: 061

REACTIONS (3)
  - Abortion spontaneous [Unknown]
  - Ovarian cancer [Unknown]
  - Exposure during pregnancy [Unknown]
